FAERS Safety Report 19612133 (Version 1)
Quarter: 2021Q3

REPORT INFORMATION
  Report Type: Spontaneous
  Country: US (occurrence: US)
  Receive Date: 20210726
  Receipt Date: 20210726
  Transmission Date: 20211014
  Serious: Yes (Death, Hospitalization, Other)
  Sender: FDA-Public Use
  Company Number: US-GILEAD-2021-0541774

PATIENT
  Sex: Male

DRUGS (1)
  1. YESCARTA [Suspect]
     Active Substance: AXICABTAGENE CILOLEUCEL
     Indication: PRODUCT USED FOR UNKNOWN INDICATION
     Dosage: TREATED BETWEEN NOV?2017 AND MAY?2019
     Route: 065

REACTIONS (5)
  - Immune effector cell-associated neurotoxicity syndrome [Unknown]
  - Arrhythmia [Unknown]
  - Shock [Unknown]
  - Renal failure [Unknown]
  - Cytokine release syndrome [Fatal]
